FAERS Safety Report 5519130-6 (Version None)
Quarter: 2007Q4

REPORT INFORMATION
  Report Type: 
  Country: None (occurrence: None)
  Receive Date: 20071114
  Receipt Date: 20071114
  Transmission Date: 20080405
  Serious: Yes (Life-Threatening)
  Sender: FDA-Public Use
  Company Number: None

PATIENT
  Age: 53 Year
  Sex: Female
  Weight: 77.1115 kg

DRUGS (1)
  1. CHANTIX [Suspect]
     Indication: SMOKING CESSATION THERAPY
     Dosage: 1.0 MG BID PO
     Route: 048
     Dates: start: 20071029, end: 20071101

REACTIONS (10)
  - AGGRESSION [None]
  - CONFUSIONAL STATE [None]
  - DEPRESSION [None]
  - DISORIENTATION [None]
  - DISTURBANCE IN ATTENTION [None]
  - IMPAIRED WORK ABILITY [None]
  - LOSS OF EMPLOYMENT [None]
  - NAUSEA [None]
  - PANIC REACTION [None]
  - VOMITING [None]
